FAERS Safety Report 21455981 (Version 1)
Quarter: 2022Q4

REPORT INFORMATION
  Report Type: Spontaneous
  Country: US (occurrence: US)
  Receive Date: 20221014
  Receipt Date: 20221014
  Transmission Date: 20230113
  Serious: No
  Sender: FDA-Public Use
  Company Number: US-ORGANON-O2209USA002148

PATIENT
  Sex: Female

DRUGS (1)
  1. NEXPLANON [Suspect]
     Active Substance: ETONOGESTREL
     Dosage: 68 MILLIGRAM (MG), ONCE
     Route: 059
     Dates: start: 20190920, end: 20220923

REACTIONS (2)
  - Device breakage [Recovered/Resolved]
  - No adverse event [Unknown]
